FAERS Safety Report 7682531-4 (Version None)
Quarter: 2011Q3

REPORT INFORMATION
  Report Type: 
  Country: None (occurrence: None)
  Receive Date: 20110810
  Receipt Date: 20110728
  Transmission Date: 20111222
  Serious: Yes (Hospitalization)
  Sender: FDA-Public Use
  Company Number: DSJ-2011-04546

PATIENT
  Age: 8 Decade
  Sex: Female

DRUGS (2)
  1. BENICAR HCT [Suspect]
     Indication: HYPERTENSION
     Dosage: 20/12.5 MG (1 IN 1 D), PER ORAL   40/12.5 MG (1 IN 1 D) PER ORAL
     Dates: start: 20060101, end: 20110101
  2. BENICAR HCT [Suspect]
     Indication: HYPERTENSION
     Dosage: 20/12.5 MG (1 IN 1 D), PER ORAL   40/12.5 MG (1 IN 1 D) PER ORAL
     Dates: start: 20110101

REACTIONS (3)
  - LORDOSIS [None]
  - CONDITION AGGRAVATED [None]
  - DRUG INEFFECTIVE [None]
